FAERS Safety Report 20358936 (Version 4)
Quarter: 2024Q3

REPORT INFORMATION
  Report Type: Spontaneous
  Country: US (occurrence: US)
  Receive Date: 20220120
  Receipt Date: 20240820
  Transmission Date: 20241016
  Serious: Yes (Hospitalization, Other)
  Sender: SANOFI AVENTIS
  Company Number: US-SA-SAC20220118000830

PATIENT
  Age: 15 Year
  Sex: Male
  Weight: 104.31 kg

DRUGS (22)
  1. ALPROLIX [Suspect]
     Active Substance: EFTRENONACOG ALFA
     Indication: Factor IX deficiency
     Dosage: 2096 IU
     Route: 042
  2. ALPROLIX [Suspect]
     Active Substance: EFTRENONACOG ALFA
     Indication: Factor IX deficiency
     Dosage: 2096 IU
     Route: 042
  3. ALPROLIX [Suspect]
     Active Substance: EFTRENONACOG ALFA
     Dosage: 5250 UNITS (4725-5775) SLOW IV PUSH EVERY MONDAY AND THURSDAY
     Route: 042
  4. ALPROLIX [Suspect]
     Active Substance: EFTRENONACOG ALFA
     Dosage: 5250 UNITS (4725-5775) SLOW IV PUSH EVERY MONDAY AND THURSDAY
     Route: 042
  5. ALPROLIX [Suspect]
     Active Substance: EFTRENONACOG ALFA
     Dosage: 10,500 UNITS (9450-11,550)
     Route: 042
  6. ALPROLIX [Suspect]
     Active Substance: EFTRENONACOG ALFA
     Dosage: 10,500 UNITS (9450-11,550)
     Route: 042
  7. ALPROLIX [Suspect]
     Active Substance: EFTRENONACOG ALFA
     Dosage: 8854 U (STRENGTH: 4427U)
     Route: 042
     Dates: start: 202201
  8. ALPROLIX [Suspect]
     Active Substance: EFTRENONACOG ALFA
     Dosage: 8854 U (STRENGTH: 4427U)
     Route: 042
     Dates: start: 202201
  9. ALPROLIX [Suspect]
     Active Substance: EFTRENONACOG ALFA
     Dosage: 1072 U (STRENGTH: 1072U)
     Route: 042
     Dates: start: 202201
  10. ALPROLIX [Suspect]
     Active Substance: EFTRENONACOG ALFA
     Dosage: 1072 U (STRENGTH: 1072U)
     Route: 042
     Dates: start: 202201
  11. ALPROLIX [Suspect]
     Active Substance: EFTRENONACOG ALFA
     Dosage: 5000 IU, TIW
     Route: 042
  12. ALPROLIX [Suspect]
     Active Substance: EFTRENONACOG ALFA
     Dosage: 5000 IU, TIW
     Route: 042
  13. ALPROLIX [Suspect]
     Active Substance: EFTRENONACOG ALFA
     Dosage: 6400 IU, QW (6400 UNITS (5760-7040) SLOW IV PUSH ON TUESDAYS FOR PROPHYLAXIS)
     Route: 042
  14. ALPROLIX [Suspect]
     Active Substance: EFTRENONACOG ALFA
     Dosage: 6400 IU, QW (6400 UNITS (5760-7040) SLOW IV PUSH ON TUESDAYS FOR PROPHYLAXIS)
     Route: 042
  15. ALPROLIX [Suspect]
     Active Substance: EFTRENONACOG ALFA
     Dosage: 6400 IU, PRN (6400 UNITS (5760-7040) SLOW IV PUSH AS NEEDED FOR MILD BLEED)
     Route: 042
  16. ALPROLIX [Suspect]
     Active Substance: EFTRENONACOG ALFA
     Dosage: 6400 IU, PRN (6400 UNITS (5760-7040) SLOW IV PUSH AS NEEDED FOR MILD BLEED)
     Route: 042
  17. ALPROLIX [Suspect]
     Active Substance: EFTRENONACOG ALFA
     Dosage: 12800 IU, PRN (12800 U (11520-14080) AS NEEDED FOR MAJOR/JOINT/HEAD BLEED)
     Route: 042
  18. ALPROLIX [Suspect]
     Active Substance: EFTRENONACOG ALFA
     Dosage: 12800 IU, PRN (12800 U (11520-14080) AS NEEDED FOR MAJOR/JOINT/HEAD BLEED)
     Route: 042
  19. ALPROLIX [Suspect]
     Active Substance: EFTRENONACOG ALFA
     Dosage: 7700 U, QW
     Route: 042
  20. ALPROLIX [Suspect]
     Active Substance: EFTRENONACOG ALFA
     Dosage: 7700 U, QW
     Route: 042
  21. ALPROLIX [Suspect]
     Active Substance: EFTRENONACOG ALFA
     Dosage: 7700 U, PRN
     Route: 042
  22. ALPROLIX [Suspect]
     Active Substance: EFTRENONACOG ALFA
     Dosage: 7700 U, PRN
     Route: 042

REACTIONS (4)
  - Haemorrhage [Unknown]
  - Knee operation [Unknown]
  - Haemorrhage [Unknown]
  - Haemorrhage [Recovered/Resolved]

NARRATIVE: CASE EVENT DATE: 20211216
